FAERS Safety Report 4977880-4 (Version None)
Quarter: 2006Q2

REPORT INFORMATION
  Report Type: 
  Country: None (occurrence: None)
  Receive Date: 20060417
  Receipt Date: 20060403
  Transmission Date: 20061013
  Serious: Yes (Other)
  Sender: FDA-Public Use
  Company Number: 2006035740

PATIENT
  Age: 14 Year
  Sex: Male

DRUGS (1)
  1. ZOLOFT [Suspect]
     Indication: GENERALISED ANXIETY DISORDER
     Dosage: 75 MG (1 IN 1 D),

REACTIONS (1)
  - DEFORMITY THORAX [None]
